FAERS Safety Report 18791614 (Version 3)
Quarter: 2021Q1

REPORT INFORMATION
  Report Type: Other
  Country: US (occurrence: US)
  Receive Date: 20210126
  Receipt Date: 20210311
  Transmission Date: 20210419
  Serious: Yes (Hospitalization, Other)
  Sender: FDA-Public Use
  Company Number: US-INTERCEPT-PM2021000139

PATIENT
  Age: 74 Year
  Sex: Female

DRUGS (8)
  1. URSODIOL. [Concomitant]
     Active Substance: URSODIOL
     Indication: PRIMARY BILIARY CHOLANGITIS
     Dosage: 900 MILLIGRAM, QD
     Dates: start: 2005
  2. LOVASTATIN. [Concomitant]
     Active Substance: LOVASTATIN
     Indication: LIPIDS INCREASED
  3. URSODIOL. [Concomitant]
     Active Substance: URSODIOL
     Dosage: 5 MILLIGRAM, QD
     Dates: start: 201910
  4. OMEPRAZOLE. [Concomitant]
     Active Substance: OMEPRAZOLE
     Indication: GASTROOESOPHAGEAL REFLUX DISEASE
  5. SERTRALINE [Concomitant]
     Active Substance: SERTRALINE HYDROCHLORIDE
     Indication: ANXIETY
  6. OCALIVA [Suspect]
     Active Substance: OBETICHOLIC ACID
     Indication: PRIMARY BILIARY CHOLANGITIS
     Dosage: 5 MILLIGRAM, QD
     Route: 048
     Dates: start: 20191026
  7. PROPRANOLOL [Concomitant]
     Active Substance: PROPRANOLOL HYDROCHLORIDE
     Indication: TREMOR
  8. CLONAZEPAM. [Concomitant]
     Active Substance: CLONAZEPAM
     Indication: ANXIETY

REACTIONS (7)
  - Diverticular perforation [Unknown]
  - Female genital tract fistula [Unknown]
  - Vaginal discharge [Unknown]
  - Therapy interrupted [Recovered/Resolved]
  - Diverticulitis [Unknown]
  - Fibrosis [Unknown]
  - Colectomy [Recovering/Resolving]

NARRATIVE: CASE EVENT DATE: 20210109
